FAERS Safety Report 18961874 (Version 1)
Quarter: 2021Q1

REPORT INFORMATION
  Report Type: Spontaneous
  Country: US (occurrence: US)
  Receive Date: 20210302
  Receipt Date: 20210302
  Transmission Date: 20210420
  Serious: Yes (Hospitalization)
  Sender: FDA-Public Use
  Company Number: None

PATIENT
  Age: 70 Year
  Sex: Female

DRUGS (24)
  1. ESBRIET [Suspect]
     Active Substance: PIRFENIDONE
     Indication: IDIOPATHIC PULMONARY FIBROSIS
     Route: 048
     Dates: start: 20210203
  2. DOXYCYC MONO [Concomitant]
     Active Substance: DOXYCYCLINE
  3. HYDROCO/APAP [Concomitant]
     Active Substance: ACETAMINOPHEN\HYDROCODONE
  4. SMZ/TMP DS [Concomitant]
     Active Substance: SULFAMETHOXAZOLE\TRIMETHOPRIM
  5. CARVEDILOL. [Concomitant]
     Active Substance: CARVEDILOL
  6. PREDNISONE. [Concomitant]
     Active Substance: PREDNISONE
  7. RANOLAZINE. [Concomitant]
     Active Substance: RANOLAZINE
  8. ATORVASTATIN [Concomitant]
     Active Substance: ATORVASTATIN
  9. TORSEMIDE. [Concomitant]
     Active Substance: TORSEMIDE
  10. VITAMIN D [Concomitant]
     Active Substance: VITAMIN D NOS
  11. CLOPIDOGREL [Concomitant]
     Active Substance: CLOPIDOGREL BISULFATE
  12. FEROSUL [Concomitant]
     Active Substance: FERROUS SULFATE
  13. HUMULIN N [Concomitant]
     Active Substance: INSULIN HUMAN
  14. LATANOPROST. [Concomitant]
     Active Substance: LATANOPROST
  15. LEVOTHYROXIN [Concomitant]
     Active Substance: LEVOTHYROXINE
  16. METOPROL TAR [Concomitant]
  17. POT CHLORIDE ER [Concomitant]
  18. TRAZODONE [Concomitant]
     Active Substance: TRAZODONE HYDROCHLORIDE
  19. AZATHIORPINE [Concomitant]
     Active Substance: AZATHIOPRINE
  20. FAMOTIDINE. [Concomitant]
     Active Substance: FAMOTIDINE
  21. IRBESARTAN. [Concomitant]
     Active Substance: IRBESARTAN
  22. PANTOPRAZOLE [Concomitant]
     Active Substance: PANTOPRAZOLE
  23. ROSUVASTATIN. [Concomitant]
     Active Substance: ROSUVASTATIN
  24. BRIMONIDINE [Concomitant]
     Active Substance: BRIMONIDINE TARTRATE

REACTIONS (1)
  - Lung disorder [None]

NARRATIVE: CASE EVENT DATE: 20210215
